FAERS Safety Report 7954845-1 (Version None)
Quarter: 2011Q4

REPORT INFORMATION
  Report Type: 
  Country: None (occurrence: None)
  Receive Date: 20111202
  Receipt Date: 20111128
  Transmission Date: 20120403
  Serious: Yes (Death, Other)
  Sender: FDA-Public Use
  Company Number: US-ACTELION-A-US2011-55553

PATIENT

DRUGS (1)
  1. TRACLEER [Suspect]
     Indication: PULMONARY ARTERIAL HYPERTENSION
     Dosage: UNK
     Route: 048
     Dates: start: 20110613

REACTIONS (6)
  - COUGH [None]
  - DEATH [None]
  - PRESYNCOPE [None]
  - RESPIRATORY TRACT INFECTION [None]
  - OEDEMA PERIPHERAL [None]
  - DIZZINESS [None]
